FAERS Safety Report 14277158 (Version 3)
Quarter: 2018Q1

REPORT INFORMATION
  Report Type: Spontaneous
  Country: US (occurrence: US)
  Receive Date: 20171212
  Receipt Date: 20180109
  Transmission Date: 20180508
  Serious: Yes (Life-Threatening, Hospitalization, Other)
  Sender: FDA-Public Use
  Company Number: US-009507513-1712USA004483

PATIENT
  Age: 48 Year
  Sex: Male

DRUGS (1)
  1. KEYTRUDA [Suspect]
     Active Substance: PEMBROLIZUMAB
     Indication: LUNG CARCINOMA CELL TYPE UNSPECIFIED STAGE IV
     Dosage: 200 MG, EVERY 3 WEEKS
     Route: 042
     Dates: start: 201703

REACTIONS (3)
  - Haemorrhage intracranial [Not Recovered/Not Resolved]
  - Intracranial haematoma [Recovered/Resolved]
  - Intracranial haematoma [Unknown]

NARRATIVE: CASE EVENT DATE: 2017
